FAERS Safety Report 11059349 (Version 2)
Quarter: 2015Q2

REPORT INFORMATION
  Report Type: Report from Study
  Country: GB (occurrence: GB)
  Receive Date: 20150423
  Receipt Date: 20150512
  Transmission Date: 20150821
  Serious: No
  Sender: FDA-Public Use
  Company Number: GB-JNJFOC-20150303272

PATIENT
  Sex: Female

DRUGS (1)
  1. STELARA [Suspect]
     Active Substance: USTEKINUMAB
     Indication: PSORIASIS
     Dosage: SUBCUTANEOUS PREFILLED SYRINGE
     Route: 058
     Dates: start: 20130312

REACTIONS (1)
  - Urinary tract infection [Not Recovered/Not Resolved]
